FAERS Safety Report 20028144 (Version 4)
Quarter: 2022Q1

REPORT INFORMATION
  Report Type: Other
  Country: US (occurrence: None)
  Receive Date: 20211103
  Receipt Date: 20220103
  Transmission Date: 20220423
  Serious: Yes (Hospitalization, Other)
  Sender: FDA-Public Use
  Company Number: US-ROCHE-2946728

PATIENT
  Age: 61 Year
  Sex: Female

DRUGS (3)
  1. OCREVUS [Suspect]
     Active Substance: OCRELIZUMAB
     Indication: Relapsing multiple sclerosis
     Route: 065
     Dates: start: 20190326
  2. OCREVUS [Suspect]
     Active Substance: OCRELIZUMAB
     Route: 042
  3. SOLU-MEDROL [Concomitant]
     Active Substance: METHYLPREDNISOLONE SODIUM SUCCINATE

REACTIONS (20)
  - Optic neuritis [Recovered/Resolved]
  - Multiple sclerosis [Not Recovered/Not Resolved]
  - Urinary tract infection [Not Recovered/Not Resolved]
  - Gastroenteritis [Unknown]
  - Diarrhoea [Recovering/Resolving]
  - Skin cancer [Unknown]
  - Irritable bowel syndrome [Unknown]
  - Impaired gastric emptying [Unknown]
  - Balance disorder [Unknown]
  - Infectious mononucleosis [Unknown]
  - Lung opacity [Unknown]
  - Cardiac disorder [Unknown]
  - Migraine [Unknown]
  - Hepatic failure [Unknown]
  - Drug ineffective [Unknown]
  - Hypotension [Unknown]
  - Weight decreased [Unknown]
  - Anxiety [Unknown]
  - Depression [Unknown]
  - Fall [Unknown]

NARRATIVE: CASE EVENT DATE: 20211001
